FAERS Safety Report 9893143 (Version 1)
Quarter: 2014Q1

REPORT INFORMATION
  Report Type: Spontaneous
  Country: US (occurrence: US)
  Receive Date: 20140213
  Receipt Date: 20140213
  Transmission Date: 20141002
  Serious: No
  Sender: FDA-Public Use
  Company Number: US-009507513-1402USA004733

PATIENT
  Sex: Male

DRUGS (3)
  1. REMERON [Suspect]
     Indication: ANXIETY DISORDER
     Dosage: 30 MG, QPM
     Route: 048
     Dates: start: 20140128
  2. REMERON [Suspect]
     Indication: INSOMNIA
     Dosage: 7.5 MG, QPM
     Route: 048
  3. REMERON [Suspect]
     Dosage: 15 MG, QPM
     Route: 048

REACTIONS (1)
  - Initial insomnia [Not Recovered/Not Resolved]
